FAERS Safety Report 25451448 (Version 2)
Quarter: 2025Q3

REPORT INFORMATION
  Report Type: Spontaneous
  Country: JP (occurrence: JP)
  Receive Date: 20250618
  Receipt Date: 20250707
  Transmission Date: 20251021
  Serious: No
  Sender: GILEAD
  Company Number: JP-GILEAD-2025-0717136

PATIENT
  Age: 72 Year
  Sex: Male

DRUGS (1)
  1. VEMLIDY [Suspect]
     Active Substance: TENOFOVIR ALAFENAMIDE FUMARATE
     Indication: Hepatitis B
     Route: 048

REACTIONS (1)
  - Surgery [Unknown]
